FAERS Safety Report 13466029 (Version 1)
Quarter: 2017Q2

REPORT INFORMATION
  Report Type: Spontaneous
  Country: US (occurrence: US)
  Receive Date: 20170421
  Receipt Date: 20170421
  Transmission Date: 20170830
  Serious: No
  Sender: FDA-Public Use
  Company Number: US-PFIZER INC-2016598806

PATIENT
  Age: 67 Year
  Sex: Male
  Weight: 113.3 kg

DRUGS (12)
  1. MELATONIN [Concomitant]
     Active Substance: MELATONIN
     Dosage: 50 MG, 1X/DAY (AT NIGHT)
  2. ALPRAZOLAM. [Concomitant]
     Active Substance: ALPRAZOLAM
     Indication: BRAIN INJURY
     Dosage: UNK
  3. FLUOXETINE HCL [Concomitant]
     Active Substance: FLUOXETINE HYDROCHLORIDE
     Dosage: 40 MG, DAILY
  4. KETOCONAZOLE. [Concomitant]
     Active Substance: KETOCONAZOLE
     Dosage: UNK
  5. LYRICA [Suspect]
     Active Substance: PREGABALIN
     Indication: POLYNEUROPATHY
     Dosage: 50 MG, 1X/DAY
     Route: 048
     Dates: start: 2016
  6. LYRICA [Suspect]
     Active Substance: PREGABALIN
     Indication: NEURALGIA
     Dosage: 50 MG, 3X/DAY, (TAKE 1 CAPSULE (50 MG) BY MOUTH 3 TIMES DAILY)
     Route: 048
     Dates: start: 2016
  7. LYRICA [Suspect]
     Active Substance: PREGABALIN
     Dosage: UNK
     Dates: start: 20170410
  8. ALBUTEROL. [Concomitant]
     Active Substance: ALBUTEROL
     Dosage: UNK
     Route: 045
  9. EPIPEN [Concomitant]
     Active Substance: EPINEPHRINE
     Indication: COLD URTICARIA
     Dosage: UNK
  10. OXYCODONE AND ACETAMINOPHEN [Concomitant]
     Active Substance: ACETAMINOPHEN\OXYCODONE HYDROCHLORIDE
     Dosage: UNK, [OXYCODONE 5/ ACETAMINOPHEN 325]
  11. DOCUSATE [Concomitant]
     Active Substance: DOCUSATE
     Dosage: 600 MG, 1X/DAY
  12. PROZAC [Concomitant]
     Active Substance: FLUOXETINE HYDROCHLORIDE
     Indication: DEPRESSION
     Dosage: UNK

REACTIONS (1)
  - Weight increased [Unknown]
